FAERS Safety Report 11619587 (Version 2)
Quarter: 2016Q1

REPORT INFORMATION
  Report Type: Spontaneous
  Country: JP (occurrence: JP)
  Receive Date: 20151012
  Receipt Date: 20160325
  Transmission Date: 20160525
  Serious: Yes (Other)
  Sender: FDA-Public Use
  Company Number: JP-DEP_03080_2015

PATIENT
  Age: 63 Year
  Sex: Male

DRUGS (1)
  1. TAPENTA (TAPENTADOL) [Suspect]
     Active Substance: TAPENTADOL HYDROCHLORIDE
     Indication: PRODUCT USED FOR UNKNOWN INDICATION
     Dosage: UNK
     Route: 048
     Dates: start: 20150606, end: 20150610

REACTIONS (1)
  - Cholangitis [Unknown]

NARRATIVE: CASE EVENT DATE: 20150610
